FAERS Safety Report 7362714-3 (Version None)
Quarter: 2011Q1

REPORT INFORMATION
  Report Type: 
  Country: None (occurrence: None)
  Receive Date: 20110321
  Receipt Date: 20110309
  Transmission Date: 20110831
  Serious: Yes (Disabling, Other)
  Sender: FDA-Public Use
  Company Number: CH-BIOGENIDEC-2011BI008771

PATIENT
  Age: 45 Year
  Sex: Female

DRUGS (1)
  1. AVONEX [Suspect]
     Indication: MULTIPLE SCLEROSIS
     Dates: start: 20081111, end: 20100901

REACTIONS (3)
  - WHEELCHAIR USER [None]
  - DEPRESSION [None]
  - SELF INJURIOUS BEHAVIOUR [None]
